FAERS Safety Report 8032204-3 (Version None)
Quarter: 2012Q1

REPORT INFORMATION
  Report Type: 
  Country: None (occurrence: None)
  Receive Date: 20120110
  Receipt Date: 20120104
  Transmission Date: 20120608
  Serious: Yes (Hospitalization, Other)
  Sender: FDA-Public Use
  Company Number: US-BIOGENIDEC-2011BI048213

PATIENT
  Age: 69 Year
  Sex: Male

DRUGS (1)
  1. TYSABRI [Suspect]
     Indication: MULTIPLE SCLEROSIS
     Route: 042
     Dates: start: 20070124, end: 20111103

REACTIONS (4)
  - ESCHERICHIA INFECTION [None]
  - RENAL FAILURE ACUTE [None]
  - BACTERIAL PYELONEPHRITIS [None]
  - SEPTIC SHOCK [None]
